FAERS Safety Report 24114661 (Version 5)
Quarter: 2025Q1

REPORT INFORMATION
  Report Type: Spontaneous
  Country: GB (occurrence: GB)
  Receive Date: 20240721
  Receipt Date: 20250102
  Transmission Date: 20250409
  Serious: Yes (Hospitalization, Other)
  Sender: MYLAN
  Company Number: GB-MYLANLABS-2024M1062990

PATIENT
  Sex: Male

DRUGS (2)
  1. CLOZARIL [Suspect]
     Active Substance: CLOZAPINE
     Indication: Schizophrenia
     Route: 048
     Dates: start: 20240618, end: 20240705
  2. CLOZARIL [Suspect]
     Active Substance: CLOZAPINE
     Route: 048
     Dates: start: 20241212, end: 20241221

REACTIONS (12)
  - Cardiotoxicity [Unknown]
  - Sepsis [Unknown]
  - Hypotension [Recovering/Resolving]
  - Hemiparesis [Unknown]
  - Pulmonary embolism [Unknown]
  - Myocarditis [Unknown]
  - Dysarthria [Unknown]
  - Pyrexia [Unknown]
  - Malaise [Unknown]
  - C-reactive protein increased [Unknown]
  - Blood pressure decreased [Unknown]
  - Off label use [Unknown]

NARRATIVE: CASE EVENT DATE: 20240618
